FAERS Safety Report 16832019 (Version 1)
Quarter: 2019Q3

REPORT INFORMATION
  Report Type: Spontaneous
  Country: CN (occurrence: CN)
  Receive Date: 20190920
  Receipt Date: 20190920
  Transmission Date: 20191005
  Serious: Yes (Other)
  Sender: FDA-Public Use
  Company Number: CN-ROCHE-2404357

PATIENT
  Age: 42 Year
  Sex: Female

DRUGS (9)
  1. ENDOSTATIN [Concomitant]
     Active Substance: ENDOSTATIN
     Indication: ADENOCARCINOMA OF COLON
  2. XELODA [Suspect]
     Active Substance: CAPECITABINE
     Indication: ADENOCARCINOMA OF COLON
     Route: 048
  3. CISPLATIN. [Concomitant]
     Active Substance: CISPLATIN
     Indication: ADENOCARCINOMA OF COLON
     Route: 065
  4. CALCIUM FOLINATE [Concomitant]
     Active Substance: LEUCOVORIN CALCIUM
     Indication: ADENOCARCINOMA OF COLON
     Route: 041
  5. FLUOROURACIL. [Concomitant]
     Active Substance: FLUOROURACIL
     Indication: ADENOCARCINOMA OF COLON
  6. XELODA [Suspect]
     Active Substance: CAPECITABINE
     Route: 048
  7. IRINOTECAN [Concomitant]
     Active Substance: IRINOTECAN
     Indication: ADENOCARCINOMA OF COLON
     Route: 041
  8. APATINIB [Concomitant]
     Active Substance: APATINIB
     Indication: ADENOCARCINOMA OF COLON
  9. OXALIPLATIN. [Concomitant]
     Active Substance: OXALIPLATIN
     Indication: ADENOCARCINOMA OF COLON
     Route: 041

REACTIONS (14)
  - Pneumonitis [Unknown]
  - Pharyngitis [Unknown]
  - Palmar-plantar erythrodysaesthesia syndrome [Unknown]
  - Spinal disorder [Unknown]
  - Renal hydrocele [Unknown]
  - Cholestasis [Unknown]
  - Atelectasis [Unknown]
  - Rash [Unknown]
  - Sleep disorder [Unknown]
  - Secondary hypertension [Unknown]
  - Asthenia [Unknown]
  - Nephrolithiasis [Unknown]
  - Posterior reversible encephalopathy syndrome [Unknown]
  - White blood cell count decreased [Unknown]
